FAERS Safety Report 8048239-0 (Version None)
Quarter: 2012Q1

REPORT INFORMATION
  Report Type: 
  Country: None (occurrence: None)
  Receive Date: 20120117
  Receipt Date: 20120109
  Transmission Date: 20120608
  Serious: Yes (Hospitalization, Other)
  Sender: FDA-Public Use
  Company Number: US-BAYER-2011-038827

PATIENT
  Age: 24 Year
  Sex: Female
  Weight: 75 kg

DRUGS (5)
  1. IMIPRAMINE [Concomitant]
  2. NASALIDE [Concomitant]
  3. YASMIN [Suspect]
     Indication: CONTRACEPTION
     Dosage: UNK
     Dates: start: 20020101, end: 20040101
  4. GUAIFEN-PSE [Concomitant]
  5. WELLBUTRIN [Concomitant]

REACTIONS (10)
  - CHOLECYSTITIS [None]
  - ANXIETY [None]
  - DEEP VEIN THROMBOSIS [None]
  - PULMONARY EMBOLISM [None]
  - FEAR [None]
  - PAIN [None]
  - ANHEDONIA [None]
  - INJURY [None]
  - QUALITY OF LIFE DECREASED [None]
  - GALLBLADDER INJURY [None]
